FAERS Safety Report 23402077 (Version 1)
Quarter: 2024Q1

REPORT INFORMATION
  Report Type: Spontaneous
  Country: US (occurrence: US)
  Receive Date: 20240115
  Receipt Date: 20240115
  Transmission Date: 20240409
  Serious: No
  Sender: FDA-Public Use
  Company Number: US-TRIS PHARMA, INC.-23US011259

PATIENT

DRUGS (4)
  1. METHYLPHENIDATE HYDROCHLORIDE [Suspect]
     Active Substance: METHYLPHENIDATE HYDROCHLORIDE
     Indication: Attention deficit hyperactivity disorder
     Dosage: 2.5 MILLILITRE, QD (10 MG/5 ML BOTTLE)
     Route: 048
     Dates: start: 202312
  2. METHYLPHENIDATE HYDROCHLORIDE [Suspect]
     Active Substance: METHYLPHENIDATE HYDROCHLORIDE
     Dosage: 4 MILLIGRAM, QD (IN MORINING) OF 5MG/5ML
     Route: 048
     Dates: start: 202311, end: 202312
  3. METHYLPHENIDATE HYDROCHLORIDE [Suspect]
     Active Substance: METHYLPHENIDATE HYDROCHLORIDE
     Dosage: 5 MILLIGRAM (4 ML IN MORNING AND 1 ML IN AFTERNOON OF OF 5MG/5ML)
     Route: 048
     Dates: start: 202310, end: 202311
  4. METHYLPHENIDATE HYDROCHLORIDE [Suspect]
     Active Substance: METHYLPHENIDATE HYDROCHLORIDE
     Dosage: UNK
     Dates: start: 2023, end: 202310

REACTIONS (5)
  - Adverse drug reaction [Unknown]
  - Aggression [Unknown]
  - Incorrect dose administered [Unknown]
  - Product dose omission issue [Unknown]
  - Wrong technique in product usage process [Unknown]
